FAERS Safety Report 8571485 (Version 3)
Quarter: 2012Q4

REPORT INFORMATION
  Report Type: Spontaneous
  Country: US (occurrence: None)
  Receive Date: 20120514
  Receipt Date: 20120918
  Transmission Date: 20130627
  Serious: Yes (Hospitalization, Other)
  Sender: FDA-Public Use
  Company Number: CIP11001627

PATIENT
  Age: 59 Year
  Sex: Female
  Weight: 84.1 kg

DRUGS (16)
  1. ACTONEL [Suspect]
     Indication: OSTEOPOROSIS PROPHYLAXIS
     Dosage: 5 MG DAILY,ORAL
     Route: 048
     Dates: start: 200305, end: 200406
  2. ALENDRONATE SODIUM [Suspect]
     Indication: OSTEOPOROSIS PROPHYLAXIS
     Dosage: 70 MG, ORAL
     Route: 048
     Dates: start: 20080218, end: 201103
  3. ALENDRONATE SODIUM [Suspect]
     Indication: OSTEOPOROSIS PROPHYLAXIS
  4. FOSAMAX [Suspect]
     Indication: OSTEOPOROSIS PROPHYLAXIS
     Dosage: 70 MG WEEKLY, ORAL; ORAL
     Route: 048
     Dates: start: 20010831, end: 200801
  5. FOSAMAX [Suspect]
     Indication: OSTEOPOROSIS PROPHYLAXIS
  6. FOSAMAX [Suspect]
     Indication: OSTEOPOROSIS PROPHYLAXIS
     Dosage: 10 MG, DAILY, ORAL; ORAL
     Route: 048
     Dates: start: 19961203, end: 199712
  7. FOSAMAX [Suspect]
     Indication: OSTEOPOROSIS PROPHYLAXIS
  8. PREDNISONE [Concomitant]
  9. WARFARIN SODIUM [Concomitant]
  10. PREVACID [Concomitant]
  11. CALCIUM CARBONATE [Concomitant]
  12. VITAMIN D [Concomitant]
  13. MULTIVITAMIN /00831701/ (VITAMINS NOS) [Concomitant]
  14. FLUORIDENT (SODIUM FLUORIDE) [Concomitant]
  15. CELLSEPT (MYCOPHENOLATE MOFETIL) [Concomitant]
  16. DECARDON /00016001/ (DEXAMETHASONE) [Concomitant]

REACTIONS (25)
  - PERIODONTAL DISEASE [None]
  - OSTEONECROSIS OF JAW [None]
  - OSTEOMYELITIS CHRONIC [None]
  - TOOTH DISCOLOURATION [None]
  - LOOSE TOOTH [None]
  - DENTAL CARIES [None]
  - HYPOAESTHESIA ORAL [None]
  - TOOTH DISORDER [None]
  - GINGIVAL SWELLING [None]
  - OSTEITIS [None]
  - PRIMARY SEQUESTRUM [None]
  - ACTINOMYCOSIS [None]
  - DRY MOUTH [None]
  - SALIVARY HYPERSECRETION [None]
  - ORAL DISORDER [None]
  - DENTAL PLAQUE [None]
  - INFLAMMATION [None]
  - SENSITIVITY OF TEETH [None]
  - BONE LOSS [None]
  - GINGIVAL DISORDER [None]
  - ORAL DISCHARGE [None]
  - TOOTHACHE [None]
  - TOOTH FRACTURE [None]
  - IMPAIRED HEALING [None]
  - ANGIOPATHY [None]
